FAERS Safety Report 10012859 (Version 2)
Quarter: 2015Q2

REPORT INFORMATION
  Report Type: Spontaneous
  Country: GB (occurrence: US)
  Receive Date: 20140314
  Receipt Date: 20150629
  Transmission Date: 20150821
  Serious: Yes (Other)
  Sender: FDA-Public Use
  Company Number: US-009507513-1403USA002074

PATIENT
  Age: 52 Year
  Sex: Male

DRUGS (5)
  1. PEGASYS [Suspect]
     Active Substance: PEGINTERFERON ALFA-2A
     Indication: HEPATITIS C
     Dosage: 180 MICROGRAM, 1 IN 1 WK
     Route: 058
     Dates: start: 20130601
  2. PROPRANOLOL HYDROCHLORIDE. [Concomitant]
     Active Substance: PROPRANOLOL HYDROCHLORIDE
     Indication: HYPERTENSION
     Dosage: 20 MG, 1 IN 1 D
     Route: 048
  3. COPEGUS [Suspect]
     Active Substance: RIBAVIRIN
     Indication: HEPATITIS C
     Dosage: THREE TABLETS TWICE A DAY (200MG, 3 IN 2 D)
     Route: 048
     Dates: start: 20130601
  4. VICTRELIS [Suspect]
     Active Substance: BOCEPREVIR
     Indication: HEPATITIS C
     Dosage: 12 PILLS A DAY
     Route: 048
     Dates: start: 20130601
  5. LISINOPRIL (+) HYDROCHLOROTHIAZIDE [Concomitant]
     Active Substance: HYDROCHLOROTHIAZIDE\LISINOPRIL
     Indication: BLOOD PRESSURE
     Dosage: 12.5/20MG 2 TIMES A DAY AS REQUIRED ( 2 IN 1 D)

REACTIONS (8)
  - General physical health deterioration [Unknown]
  - Decreased appetite [Unknown]
  - Rash [Unknown]
  - Rash generalised [Unknown]
  - Suicidal ideation [Unknown]
  - Burning sensation [Unknown]
  - Abnormal dreams [Unknown]
  - Pruritus [Unknown]

NARRATIVE: CASE EVENT DATE: 201306
